FAERS Safety Report 7241520-4 (Version None)
Quarter: 2011Q1

REPORT INFORMATION
  Report Type: 
  Country: None (occurrence: None)
  Receive Date: 20110119
  Receipt Date: 20110119
  Transmission Date: 20110831
  Serious: Yes (Hospitalization)
  Sender: FDA-Public Use
  Company Number: None

PATIENT
  Sex: Female
  Weight: 68.0396 kg

DRUGS (1)
  1. PROPOXYPHENE HCL [Suspect]
     Indication: PAIN MANAGEMENT
     Dosage: 65MG 3-4/DAY PO
     Route: 048
     Dates: start: 20000101, end: 20101229

REACTIONS (3)
  - CHEST PAIN [None]
  - BUNDLE BRANCH BLOCK RIGHT [None]
  - PRODUCT QUALITY ISSUE [None]
